FAERS Safety Report 5922480-2 (Version None)
Quarter: 2008Q4

REPORT INFORMATION
  Report Type: 
  Country: None (occurrence: None)
  Receive Date: 20081017
  Receipt Date: 20081010
  Transmission Date: 20090506
  Serious: Yes (Other)
  Sender: FDA-Public Use
  Company Number: CA-NOVOPROD-280285

PATIENT
  Sex: Male

DRUGS (1)
  1. GLUCONORM [Suspect]
     Indication: DRUG USE FOR UNKNOWN INDICATION
     Route: 048

REACTIONS (3)
  - DRUG INEFFECTIVE [None]
  - HYPOGLYCAEMIC UNCONSCIOUSNESS [None]
  - INTENTIONAL OVERDOSE [None]
